FAERS Safety Report 6268270-5 (Version None)
Quarter: 2009Q3

REPORT INFORMATION
  Report Type: 
  Country: None (occurrence: None)
  Receive Date: 20090715
  Receipt Date: 20090708
  Transmission Date: 20100115
  Serious: Yes (Hospitalization, Other)
  Sender: FDA-Public Use
  Company Number: JP-JNJFOC-20090505269

PATIENT
  Sex: Male
  Weight: 70 kg

DRUGS (8)
  1. RISPERDAL [Suspect]
     Indication: DELIRIUM
     Route: 048
  2. SEROQUEL [Suspect]
     Indication: DELIRIUM
     Route: 048
  3. CEFTRIAXONE SODIUM [Suspect]
     Indication: AORTIC DISSECTION
     Route: 042
  4. CALBLOCK [Concomitant]
     Indication: AORTIC DISSECTION
     Route: 048
  5. TENORMIN [Concomitant]
     Indication: AORTIC DISSECTION
     Route: 048
  6. MICARDIS [Concomitant]
     Indication: AORTIC DISSECTION
     Route: 048
  7. CARDENALIN [Concomitant]
     Indication: AORTIC DISSECTION
     Route: 048
  8. LASIX [Concomitant]
     Indication: AORTIC DISSECTION
     Route: 048

REACTIONS (1)
  - OCULOMUCOCUTANEOUS SYNDROME [None]
